FAERS Safety Report 6233855-9 (Version None)
Quarter: 2009Q2

REPORT INFORMATION
  Report Type: 
  Country: None (occurrence: None)
  Receive Date: 20090618
  Receipt Date: 20090609
  Transmission Date: 20091009
  Serious: Yes (Other)
  Sender: FDA-Public Use
  Company Number: FI-JNJFOC-20090603777

PATIENT
  Sex: Female

DRUGS (10)
  1. REMICADE [Suspect]
     Indication: VASCULITIS
     Route: 042
  2. REMICADE [Suspect]
     Indication: SKIN ULCER
     Route: 042
  3. METHOTREXATE [Concomitant]
     Indication: RHEUMATOID ARTHRITIS
  4. FOLVITE [Concomitant]
     Indication: PROPHYLAXIS
  5. OXIKLORIN [Concomitant]
     Indication: RHEUMATOID ARTHRITIS
  6. PREDNISOLONE [Concomitant]
     Indication: VASCULITIS
  7. PREDNISOLONE [Concomitant]
     Indication: RHEUMATOID ARTHRITIS
  8. IBUSAL [Concomitant]
     Indication: RHEUMATOID ARTHRITIS
  9. ALENDRONAT [Concomitant]
     Indication: PROPHYLAXIS
  10. KALCIPOS [Concomitant]
     Indication: BONE DISORDER

REACTIONS (1)
  - SUPERFICIAL SPREADING MELANOMA STAGE II [None]
